FAERS Safety Report 8671271 (Version 6)
Quarter: 2013Q3

REPORT INFORMATION
  Report Type: Report from Study
  Country: CA (occurrence: CA)
  Receive Date: 20120718
  Receipt Date: 20130805
  Transmission Date: 20140515
  Serious: Yes (Death, Other)
  Sender: FDA-Public Use
  Company Number: PHHY2012CA017675

PATIENT
  Sex: Female

DRUGS (3)
  1. SANDOSTATIN LAR [Suspect]
     Indication: PANCREATIC NEUROENDOCRINE TUMOUR METASTATIC
     Dosage: 40 MG, EVERY 4 WEEKS
     Route: 030
     Dates: start: 20110928
  2. SANDOSTATIN LAR [Suspect]
     Dosage: 30 MG, ONCE IN EVERY 4 WEEKS
     Route: 058
  3. SANDOSTATIN LAR [Suspect]
     Dosage: 40 MG, EVERY 4 WEEKS
     Route: 030
     Dates: end: 20130124

REACTIONS (19)
  - Malignant neoplasm progression [Fatal]
  - Urinary tract infection [Recovered/Resolved]
  - Malignant ascites [Unknown]
  - Intestinal obstruction [Unknown]
  - Cystitis klebsiella [Recovering/Resolving]
  - Injection site mass [Recovered/Resolved]
  - Weight increased [Unknown]
  - Emotional disorder [Unknown]
  - Stress [Unknown]
  - Incorrect product storage [Unknown]
  - Incorrect route of drug administration [Unknown]
  - Localised intraabdominal fluid collection [Recovering/Resolving]
  - Product dosage form issue [Unknown]
  - Pain [Not Recovered/Not Resolved]
  - Malaise [Unknown]
  - Ascites [Recovered/Resolved]
  - Fatigue [Unknown]
  - Abdominal pain [Unknown]
  - Diarrhoea [Unknown]
